FAERS Safety Report 6161684-3 (Version None)
Quarter: 2009Q2

REPORT INFORMATION
  Report Type: 
  Country: None (occurrence: None)
  Receive Date: 20090421
  Receipt Date: 20090413
  Transmission Date: 20091009
  Serious: Yes (Death, Hospitalization, Disabling, Other)
  Sender: FDA-Public Use
  Company Number: US-AMGEN-US342052

PATIENT
  Sex: Female

DRUGS (18)
  1. NPLATE [Suspect]
     Indication: IDIOPATHIC THROMBOCYTOPENIC PURPURA
     Dates: start: 20090205, end: 20090226
  2. LAMICTAL [Concomitant]
  3. LISINOPRIL [Concomitant]
  4. SEPTRA DS [Concomitant]
  5. PREMARIN [Concomitant]
  6. MEDROXYPROGESTERONE [Concomitant]
  7. FOLIC ACID [Concomitant]
  8. CALCIUM WITH VITAMIN D [Concomitant]
  9. BRIMONIDINE TARTRATE [Concomitant]
     Route: 047
  10. SYNTHROID [Concomitant]
  11. LASIX [Concomitant]
  12. ZOCOR [Concomitant]
  13. TYLENOL [Concomitant]
  14. COMPAZINE [Concomitant]
  15. VICODIN [Concomitant]
  16. INSULATARD NPH HUMAN [Concomitant]
     Route: 058
  17. HUMULIN R [Concomitant]
     Route: 058
  18. HUMULIN R [Concomitant]
     Route: 058

REACTIONS (6)
  - APLASTIC ANAEMIA [None]
  - CEREBROVASCULAR ACCIDENT [None]
  - FALL [None]
  - HAEMORRHAGE [None]
  - PANCYTOPENIA [None]
  - UNRESPONSIVE TO STIMULI [None]
